FAERS Safety Report 9349539 (Version 1)
Quarter: 2013Q2

REPORT INFORMATION
  Report Type: Spontaneous
  Country: GB (occurrence: None)
  Receive Date: 20130611
  Receipt Date: 20130611
  Transmission Date: 20140414
  Serious: Yes (Life-Threatening, Other)
  Sender: FDA-Public Use
  Company Number: GER/UKI/13/0029928

PATIENT
  Age: 33 Year
  Sex: Male
  Weight: 69.95 kg

DRUGS (4)
  1. QUETIAPINE [Suspect]
     Indication: MAJOR DEPRESSION
     Route: 048
     Dates: start: 20130503, end: 20130503
  2. AMITRIPTYLINE [Suspect]
     Indication: DEPRESSION
     Route: 048
     Dates: start: 20130503, end: 20130515
  3. CITALOPRAM (CITALOPRAM) [Concomitant]
  4. TEMAZEPAM (TEMAZEPAM) [Concomitant]

REACTIONS (7)
  - Deep vein thrombosis [None]
  - Pulmonary embolism [None]
  - Bundle branch block right [None]
  - Atelectasis [None]
  - Chest pain [None]
  - Pain in extremity [None]
  - Fibrin D dimer increased [None]
